FAERS Safety Report 4778688-5 (Version None)
Quarter: 2005Q3

REPORT INFORMATION
  Report Type: 
  Country: None (occurrence: None)
  Receive Date: 20050922
  Receipt Date: 20050912
  Transmission Date: 20060218
  Serious: Yes (Hospitalization)
  Sender: FDA-Public Use
  Company Number: 6013726

PATIENT
  Age: 66 Year
  Sex: Female

DRUGS (4)
  1. LODOZ 10 MG/6.25 MG(TABLET) (HYDROCHLOROTHIAZIDE, BISOPROLOL FUMARATE) [Suspect]
     Dosage: 1,000 DOSAGE  FORM (1 DOSAGE FORMS, 1 IN 1 D) ORAL
     Route: 048
  2. CACIT(CITRIC AICD, CALCIUM CARBONATE) [Suspect]
     Dosage: 1,00 DOSAGE FORMS (1 DOSAGE FORMS, 1 IN 1 D) ORAL
     Route: 048
  3. EVISTA [Suspect]
     Dosage: ORAL
     Route: 048
     Dates: start: 20050211
  4. FOSAMAX [Suspect]
     Dosage: 1,00 DOSAGE FORMS ( 1 DOSAGE FORMS, 1 IN 1 D) ORAL
     Route: 048

REACTIONS (3)
  - ACTIVATED PROTEIN C RESISTANCE [None]
  - DEEP VEIN THROMBOSIS [None]
  - PULMONARY EMBOLISM [None]
